FAERS Safety Report 17812127 (Version 1)
Quarter: 2020Q2

REPORT INFORMATION
  Report Type: Report from Study
  Country: US (occurrence: US)
  Receive Date: 20200521
  Receipt Date: 20200521
  Transmission Date: 20200714
  Serious: Yes (Other)
  Sender: FDA-Public Use
  Company Number: US-PFIZER INC-2020195918

PATIENT
  Age: 67 Year
  Sex: Male

DRUGS (5)
  1. NOREPINEPHRINE BITARTRATE. [Suspect]
     Active Substance: NOREPINEPHRINE BITARTRATE
     Indication: DELAYED ISCHAEMIC NEUROLOGICAL DEFICIT
     Dosage: 28 MCG/MIN
  2. LEVETIRACETAM. [Concomitant]
     Active Substance: LEVETIRACETAM
     Indication: SEIZURE PROPHYLAXIS
     Dosage: UNK (BRIEF COURSE)
  3. PHENYLEPHRINE [Suspect]
     Active Substance: PHENYLEPHRINE HYDROCHLORIDE
     Indication: DELAYED ISCHAEMIC NEUROLOGICAL DEFICIT
     Dosage: 105 MCG/MIN
  4. TRANEXAMIC ACID. [Concomitant]
     Active Substance: TRANEXAMIC ACID
     Dosage: UNK
  5. NIMODIPINE. [Concomitant]
     Active Substance: NIMODIPINE
     Dosage: UNK (ENTERAL NIMODIPINE FOR 21D) UNK (ENTERAL NIMODIPINE FOR 21D)

REACTIONS (3)
  - Posterior reversible encephalopathy syndrome [Recovered/Resolved]
  - Lethargy [Recovered/Resolved]
  - Hemiparesis [Recovered/Resolved]
